FAERS Safety Report 8305006-8 (Version None)
Quarter: 2012Q2

REPORT INFORMATION
  Report Type: 
  Country: None (occurrence: None)
  Receive Date: 20120423
  Receipt Date: 20120412
  Transmission Date: 20120825
  Serious: Yes (Hospitalization)
  Sender: FDA-Public Use
  Company Number: FR-ASTRAZENECA-2012SE24713

PATIENT
  Age: 84 Year
  Sex: Female

DRUGS (8)
  1. FENOFIBRATE [Suspect]
     Indication: HYPERTRIGLYCERIDAEMIA
     Route: 048
     Dates: end: 20120124
  2. BEROCCA C [Suspect]
     Indication: MAGNESIUM DEFICIENCY
     Route: 048
     Dates: end: 20120119
  3. LASIX [Suspect]
     Indication: HYPERTENSION
     Route: 048
     Dates: end: 20120125
  4. CALCIPARINE [Suspect]
     Indication: PROPHYLAXIS
     Route: 058
     Dates: start: 20111230, end: 20120123
  5. ZESTRIL [Suspect]
     Indication: HYPERTENSION
     Route: 048
     Dates: end: 20120124
  6. CYANOCOBALAMIN [Suspect]
     Indication: ASTHENIA
     Route: 048
     Dates: end: 20120119
  7. BISOPROLOL FUMARATE [Concomitant]
  8. DIGOXIN [Concomitant]

REACTIONS (1)
  - HAEMATOMA [None]
